FAERS Safety Report 8879877 (Version 1)
Quarter: 2012Q4

REPORT INFORMATION
  Report Type: 
  Country: CH (occurrence: CH)
  Receive Date: 20121031
  Receipt Date: 20121031
  Transmission Date: 20130627
  Serious: Yes (Other)
  Sender: FDA-Public Use
  Company Number: CH-BRISTOL-MYERS SQUIBB COMPANY-17069485

PATIENT
  Sex: Female
  Weight: 3 kg

DRUGS (1)
  1. GLUCOPHAGE [Suspect]
     Route: 064

REACTIONS (1)
  - Cataract congenital [Not Recovered/Not Resolved]
